FAERS Safety Report 7955795-7 (Version None)
Quarter: 2011Q4

REPORT INFORMATION
  Report Type: 
  Country: None (occurrence: None)
  Receive Date: 20111205
  Receipt Date: 20111121
  Transmission Date: 20120403
  Serious: Yes (Hospitalization)
  Sender: FDA-Public Use
  Company Number: DE-BIOGENIDEC-2011BI031345

PATIENT
  Age: 42 Year
  Sex: Female

DRUGS (1)
  1. TYSABRI [Suspect]
     Indication: RELAPSING-REMITTING MULTIPLE SCLEROSIS
     Route: 042
     Dates: start: 20070801, end: 20110707

REACTIONS (8)
  - PROGRESSIVE MULTIFOCAL LEUKOENCEPHALOPATHY [None]
  - MULTIPLE SCLEROSIS RELAPSE [None]
  - MENTAL DISORDER DUE TO A GENERAL MEDICAL CONDITION [None]
  - IMMUNE RECONSTITUTION SYNDROME [None]
  - HERPES SIMPLEX [None]
  - HYPOKALAEMIA [None]
  - SECONDARY PROGRESSIVE MULTIPLE SCLEROSIS [None]
  - FATIGUE [None]
